FAERS Safety Report 8665076 (Version 2)
Quarter: 2012Q4

REPORT INFORMATION
  Report Type: 
  Country: JP (occurrence: JP)
  Receive Date: 20120716
  Receipt Date: 20121210
  Transmission Date: 20130627
  Serious: Yes (Other)
  Sender: FDA-Public Use
  Company Number: JP-BIOGENIDEC-2007BI021873

PATIENT
  Age: 19 Year
  Sex: Male
  Weight: 65 kg

DRUGS (1)
  1. AVONEX [Suspect]
     Indication: MULTIPLE SCLEROSIS
     Route: 030
     Dates: start: 20070912, end: 20090617

REACTIONS (6)
  - Myasthenia gravis [Recovered/Resolved]
  - C-reactive protein increased [Recovered/Resolved]
  - Hepatic function abnormal [Recovered/Resolved]
  - Pyrexia [Recovered/Resolved]
  - Lymphocyte percentage decreased [Recovered/Resolved]
  - Multiple sclerosis relapse [Recovered/Resolved]
